FAERS Safety Report 10057129 (Version 2)
Quarter: 2014Q2

REPORT INFORMATION
  Report Type: Spontaneous
  Country: US (occurrence: US)
  Receive Date: 20140403
  Receipt Date: 20140606
  Transmission Date: 20141212
  Serious: No
  Sender: FDA-Public Use
  Company Number: US-009507513-1403USA012239

PATIENT
  Age: 69 Year
  Sex: Female
  Weight: 72.56 kg

DRUGS (3)
  1. OXYTROL FOR WOMEN [Suspect]
     Indication: HYPERTONIC BLADDER
     Dosage: 1 DF, Q4D OR Q5D
     Route: 062
     Dates: start: 201402
  2. MELOXICAM [Concomitant]
     Indication: ARTHRITIS
     Dosage: UNK, UNKNOWN
  3. ATORVASTATIN [Concomitant]
     Indication: BLOOD CHOLESTEROL INCREASED
     Dosage: UNK, UNKNOWN

REACTIONS (3)
  - Dry mouth [Unknown]
  - Incorrect drug administration duration [Unknown]
  - Product packaging issue [Unknown]
